FAERS Safety Report 9701103 (Version 1)
Quarter: 2013Q4

REPORT INFORMATION
  Report Type: Spontaneous
  Country: FR (occurrence: FR)
  Receive Date: 20131121
  Receipt Date: 20131121
  Transmission Date: 20140711
  Serious: Yes (Hospitalization)
  Sender: FDA-Public Use
  Company Number: FR-JNJFOC-20131106803

PATIENT
  Age: 58 Year
  Sex: Female

DRUGS (8)
  1. HALDOL DECANOAS [Suspect]
     Indication: PRODUCT USED FOR UNKNOWN INDICATION
     Route: 030
     Dates: end: 20101207
  2. TERCIAN [Suspect]
     Indication: PRODUCT USED FOR UNKNOWN INDICATION
     Route: 048
     Dates: end: 20101207
  3. OMEPRAZOLE [Suspect]
     Indication: PRODUCT USED FOR UNKNOWN INDICATION
     Route: 048
     Dates: end: 20101207
  4. PARKINANE [Suspect]
     Indication: PRODUCT USED FOR UNKNOWN INDICATION
     Dosage: ONE TABLET MORNING
     Route: 048
     Dates: end: 20101207
  5. ATHYMIL [Concomitant]
     Route: 048
     Dates: end: 20101207
  6. IMOVANE [Concomitant]
     Dosage: ONE TABLET IN EVENING
     Route: 048
     Dates: end: 20101207
  7. SERESTA [Concomitant]
     Route: 048
     Dates: end: 20101207
  8. VERATRAN [Concomitant]
     Route: 060
     Dates: start: 20101018, end: 20101207

REACTIONS (4)
  - Hypothermia [Recovered/Resolved]
  - Hyperglycaemia [Unknown]
  - Disturbance in attention [Unknown]
  - Inflammation [Unknown]
